FAERS Safety Report 6636744-0 (Version None)
Quarter: 2010Q1

REPORT INFORMATION
  Report Type: 
  Country: None (occurrence: None)
  Receive Date: 20100226
  Receipt Date: 20090611
  Transmission Date: 20100710
  Serious: Yes (Other)
  Sender: FDA-Public Use
  Company Number: 284905

PATIENT
  Age: 15 Year
  Sex: Male
  Weight: 48.2 kg

DRUGS (1)
  1. NUTROPIN AQ [Suspect]
     Dosage: 4 MG, 7/WEEK, SUBCUTANEOUS
     Route: 058
     Dates: start: 20080316, end: 20090506

REACTIONS (1)
  - SCOLIOSIS [None]
